FAERS Safety Report 7237951-9 (Version None)
Quarter: 2011Q1

REPORT INFORMATION
  Report Type: 
  Country: None (occurrence: None)
  Receive Date: 20110119
  Receipt Date: 20110119
  Transmission Date: 20110831
  Serious: Yes (Other)
  Sender: FDA-Public Use
  Company Number: None

PATIENT
  Age: 71 Year
  Sex: Female

DRUGS (19)
  1. TRIMETHOPRIM [Concomitant]
  2. BENAZEPRIL HYDROCHLORIDE [Concomitant]
  3. ASPIRIN [Concomitant]
  4. CALCITONIN [Concomitant]
  5. SYNTHROID [Concomitant]
  6. FLOMAX [Concomitant]
  7. FOSAMAX [Concomitant]
  8. OMEGA 3 FATTY ACIDS [Concomitant]
  9. RALOXIFENE HCL [Concomitant]
  10. SIMVASTATIN [Concomitant]
  11. SEPTRA [Concomitant]
  12. CALCIUM CITRATE [Concomitant]
  13. OMEPRAZOLE [Concomitant]
  14. ESTROGEN CONJUGATED [Concomitant]
  15. TETRACAINE/OXYMETAZOLINE [Suspect]
     Indication: ANAESTHESIA
     Dosage: 1/2 SECOND SPRAY IN EACH NOSTR ONCE NASAL
     Route: 045
     Dates: start: 20101217, end: 20101217
  16. ACETAMINOPHEN AND HYDROCODONE BITARTRATE [Concomitant]
  17. TRIMETHOPRIM [Suspect]
     Indication: PROPHYLAXIS
     Dosage: 100MG DAILY PO
     Route: 048
     Dates: start: 20101111, end: 20101217
  18. NITROFURANTOIN [Concomitant]
  19. BELLADONNA ALKALOIDS/PHENOBARBITAL [Concomitant]

REACTIONS (2)
  - URINARY TRACT INFECTION [None]
  - METHAEMOGLOBINAEMIA [None]
